FAERS Safety Report 24085745 (Version 4)
Quarter: 2024Q4

REPORT INFORMATION
  Report Type: Spontaneous
  Country: US (occurrence: US)
  Receive Date: 20240712
  Receipt Date: 20241126
  Transmission Date: 20250115
  Serious: Yes (Disabling, Other)
  Sender: PFIZER
  Company Number: US-PFIZER INC-PV202400091543

PATIENT
  Age: 60 Year
  Sex: Female

DRUGS (1)
  1. XELJANZ XR [Suspect]
     Active Substance: TOFACITINIB CITRATE
     Dosage: 11 MG

REACTIONS (11)
  - Road traffic accident [Unknown]
  - Memory impairment [Unknown]
  - Fall [Unknown]
  - Neck surgery [Unknown]
  - Peripheral nerve injury [Unknown]
  - Arthropathy [Unknown]
  - Intervertebral disc injury [Unknown]
  - Headache [Unknown]
  - Pain [Unknown]
  - Insomnia [Unknown]
  - Arthritis [Unknown]

NARRATIVE: CASE EVENT DATE: 20200101
